FAERS Safety Report 15209832 (Version 19)
Quarter: 2020Q3

REPORT INFORMATION
  Report Type: Report from Study
  Country: US (occurrence: US)
  Receive Date: 20180727
  Receipt Date: 20200820
  Transmission Date: 20201102
  Serious: Yes (Hospitalization, Other)
  Sender: FDA-Public Use
  Company Number: US-ACTELION-A-NJ2017-162428

PATIENT
  Age: 67 Year
  Sex: Female
  Weight: 49.89 kg

DRUGS (5)
  1. OPSUMIT [Suspect]
     Active Substance: MACITENTAN
     Dosage: 10 MG, QD
     Route: 048
     Dates: start: 2015
  2. BRILINTA [Suspect]
     Active Substance: TICAGRELOR
     Indication: PRODUCT USED FOR UNKNOWN INDICATION
     Route: 048
  3. NIACIN. [Suspect]
     Active Substance: NIACIN
     Indication: PRODUCT USED FOR UNKNOWN INDICATION
     Route: 065
  4. PLAVIX [Concomitant]
     Active Substance: CLOPIDOGREL BISULFATE
  5. OPSUMIT [Suspect]
     Active Substance: MACITENTAN
     Indication: PULMONARY ARTERIAL HYPERTENSION
     Dosage: 10 MG, QD
     Route: 048
     Dates: start: 20170327

REACTIONS (33)
  - Post procedural complication [Recovered/Resolved]
  - Stent placement [Unknown]
  - Diagnostic procedure [Unknown]
  - Hepatic enzyme increased [Unknown]
  - Sciatica [Unknown]
  - Treatment noncompliance [Unknown]
  - Amylase increased [Unknown]
  - Alanine aminotransferase increased [Unknown]
  - Hypersensitivity [Recovered/Resolved]
  - Dizziness [Not Recovered/Not Resolved]
  - Cardiac stress test abnormal [Unknown]
  - Peripheral swelling [Recovered/Resolved]
  - Spinal operation [Unknown]
  - Incontinence [Unknown]
  - Dyspnoea exertional [Not Recovered/Not Resolved]
  - Cardiac disorder [Unknown]
  - Asthenia [Not Recovered/Not Resolved]
  - Thrombosis [Recovered/Resolved]
  - Hypertension [Unknown]
  - Pancreatic enzymes increased [Unknown]
  - Product dose omission issue [Unknown]
  - Urticaria [Recovered/Resolved]
  - Fatigue [Unknown]
  - Venous aneurysm [Recovered/Resolved]
  - Atrial fibrillation [Unknown]
  - Lipase increased [Unknown]
  - Aspartate aminotransferase increased [Unknown]
  - Arthralgia [Unknown]
  - Hypoacusis [Unknown]
  - Headache [Unknown]
  - Haemorrhage [Unknown]
  - Internal haemorrhage [Unknown]
  - Dyspnoea [Unknown]

NARRATIVE: CASE EVENT DATE: 20180515
